FAERS Safety Report 5768417-0 (Version None)
Quarter: 2008Q2

REPORT INFORMATION
  Report Type: 
  Country: None (occurrence: None)
  Receive Date: 20080612
  Receipt Date: 20080304
  Transmission Date: 20081010
  Serious: No
  Sender: FDA-Public Use
  Company Number: US-ABBOTT-08P-163-0441008-00

PATIENT
  Sex: Male
  Weight: 81.72 kg

DRUGS (12)
  1. HUMIRA [Suspect]
     Indication: CROHN'S DISEASE
     Route: 058
     Dates: start: 20070501
  2. HUMIRA [Suspect]
     Route: 058
  3. CYANOCOBALAMIN-TANNIN COMPLEX [Concomitant]
     Indication: DRUG USE FOR UNKNOWN INDICATION
     Route: 050
  4. UROCIT-K [Concomitant]
     Indication: DRUG USE FOR UNKNOWN INDICATION
  5. MORNIFLUMATE [Concomitant]
     Indication: SEASONAL ALLERGY
  6. SAWBALBAMO [Concomitant]
     Indication: PHYTOTHERAPY
  7. TRAMADOL HCL [Concomitant]
     Indication: PAIN
  8. FLORAQUE [Concomitant]
     Indication: DRUG USE FOR UNKNOWN INDICATION
  9. MECLIZINE [Concomitant]
     Indication: VERTIGO
  10. MECLIZINE [Concomitant]
     Indication: DIZZINESS
  11. CIPROFLOXACIN HCL [Concomitant]
     Indication: EAR INFECTION
     Dosage: 10 DAYS
  12. CIPROFLOXACIN HCL [Concomitant]
     Indication: SINUSITIS

REACTIONS (4)
  - DIZZINESS [None]
  - EAR INFECTION [None]
  - SINUSITIS [None]
  - VERTIGO [None]
